FAERS Safety Report 14233007 (Version 1)
Quarter: 2017Q4

REPORT INFORMATION
  Report Type: Spontaneous
  Country: US (occurrence: None)
  Receive Date: 20171128
  Receipt Date: 20171128
  Transmission Date: 20180321
  Serious: Yes (Hospitalization)
  Sender: FDA-Public Use
  Company Number: None

PATIENT
  Age: 41 Year
  Sex: Female
  Weight: 68.3 kg

DRUGS (1)
  1. CISPLATIN. [Suspect]
     Active Substance: CISPLATIN
     Dates: end: 20170717

REACTIONS (14)
  - Constipation [None]
  - Small intestinal perforation [None]
  - Abscess intestinal [None]
  - Abdominal pain [None]
  - Nausea [None]
  - Urine leukocyte esterase positive [None]
  - Dyspepsia [None]
  - Diarrhoea [None]
  - Small intestinal obstruction [None]
  - Sinus tachycardia [None]
  - Incision site cellulitis [None]
  - Vomiting [None]
  - Gastrointestinal necrosis [None]
  - Seroma [None]

NARRATIVE: CASE EVENT DATE: 20171017
